FAERS Safety Report 6714139-9 (Version None)
Quarter: 2010Q2

REPORT INFORMATION
  Report Type: 
  Country: None (occurrence: None)
  Receive Date: 20100503
  Receipt Date: 20100418
  Transmission Date: 20101027
  Serious: Yes (Other)
  Sender: FDA-Public Use
  Company Number: 2010000754

PATIENT
  Age: 69 Year
  Sex: Female

DRUGS (1)
  1. TARCEVA [Suspect]
     Indication: LUNG ADENOCARCINOMA
     Dosage: 150 MG; ORAL
     Route: 048
     Dates: start: 20091217, end: 20100125

REACTIONS (3)
  - FACIAL PAIN [None]
  - RASH [None]
  - SKIN LESION [None]
